FAERS Safety Report 6888922-3 (Version None)
Quarter: 2010Q3

REPORT INFORMATION
  Report Type: 
  Country: None (occurrence: None)
  Receive Date: 20100730
  Receipt Date: 20100728
  Transmission Date: 20110219
  Serious: Yes (Hospitalization)
  Sender: FDA-Public Use
  Company Number: DE-MERCK-1007DEU00106

PATIENT
  Age: 79 Year
  Sex: Female

DRUGS (2)
  1. JANUMET [Suspect]
     Indication: TYPE 2 DIABETES MELLITUS
     Route: 048
     Dates: start: 20100623, end: 20100708
  2. INSULIN [Concomitant]
     Indication: TYPE 2 DIABETES MELLITUS
     Route: 051

REACTIONS (3)
  - BLISTER [None]
  - RASH [None]
  - ULCER [None]
